FAERS Safety Report 13580366 (Version 1)
Quarter: 2017Q2

REPORT INFORMATION
  Report Type: Spontaneous
  Country: KR (occurrence: KR)
  Receive Date: 20170525
  Receipt Date: 20170525
  Transmission Date: 20170830
  Serious: Yes (Death)
  Sender: FDA-Public Use
  Company Number: KR-GUERBET-KR-20170027

PATIENT
  Age: 72 Year
  Sex: Male

DRUGS (1)
  1. OPTIRAY 350 [Suspect]
     Active Substance: IOVERSOL
     Indication: COMPUTERISED TOMOGRAM
     Route: 042
     Dates: start: 20170506, end: 20170506

REACTIONS (4)
  - Vomiting [Fatal]
  - Peritonitis [Fatal]
  - Diarrhoea [Fatal]
  - Dizziness [Fatal]

NARRATIVE: CASE EVENT DATE: 20170506
